FAERS Safety Report 4582906-6 (Version None)
Quarter: 2005Q1

REPORT INFORMATION
  Report Type: 
  Country: None (occurrence: None)
  Receive Date: 20050215
  Receipt Date: 20050202
  Transmission Date: 20050727
  Serious: Yes (Hospitalization)
  Sender: FDA-Public Use
  Company Number: CA-AMGEN-US111180

PATIENT
  Age: 27 Year
  Sex: Female

DRUGS (3)
  1. NEUPOGEN [Suspect]
     Indication: AGRANULOCYTOSIS
     Dates: start: 19950101
  2. NEUPOGEN [Suspect]
     Dates: start: 20050111
  3. ORAL CONTRACEPTIVE NOS [Concomitant]

REACTIONS (3)
  - MUCOSAL INFLAMMATION [None]
  - MYALGIA [None]
  - NEUTROPENIA [None]
